FAERS Safety Report 18230088 (Version 1)
Quarter: 2020Q3

REPORT INFORMATION
  Report Type: Report from Study
  Country: DK (occurrence: DK)
  Receive Date: 20200903
  Receipt Date: 20200903
  Transmission Date: 20201103
  Serious: Yes (Death)
  Sender: FDA-Public Use
  Company Number: DK-PURDUE-USA-2020-0163803

PATIENT

DRUGS (18)
  1. CODEINE [Concomitant]
     Active Substance: CODEINE
     Dosage: UNK
  2. BUPRENORPHINE. [Suspect]
     Active Substance: BUPRENORPHINE
     Indication: PRODUCT USED FOR UNKNOWN INDICATION
     Dosage: UNK
     Route: 065
  3. METHAMPHETAMINE [Concomitant]
     Active Substance: METHAMPHETAMINE
     Dosage: UNK
  4. OXYCODONE HYDROCHLORIDE. [Concomitant]
     Active Substance: OXYCODONE HYDROCHLORIDE
     Dosage: UNK
  5. CANNABINOL [Concomitant]
     Active Substance: CANNABINOL
  6. FENTANYL. [Suspect]
     Active Substance: FENTANYL
     Indication: PRODUCT USED FOR UNKNOWN INDICATION
     Dosage: UNK
     Route: 065
  7. METHADONE [Concomitant]
     Active Substance: METHADONE HYDROCHLORIDE
     Dosage: UNK
  8. MITRAGYNINE [Concomitant]
     Active Substance: HERBALS\MITRAGYNINE
  9. AMPHETAMINE [Concomitant]
     Active Substance: AMPHETAMINE
     Dosage: UNK
  10. HEROIN [Concomitant]
     Active Substance: DIAMORPHINE
     Dosage: UNK
  11. GAMMA?AMINOBUTYRIC ACID [Concomitant]
     Active Substance: .GAMMA.-AMINOBUTYRIC ACID
     Dosage: UNK
  12. ZOPICLONE [Concomitant]
     Active Substance: ZOPICLONE
     Dosage: UNK
  13. TRAMADOL HYDROCHLORIDE. [Suspect]
     Active Substance: TRAMADOL HYDROCHLORIDE
     Indication: PRODUCT USED FOR UNKNOWN INDICATION
     Dosage: UNK
     Route: 065
  14. ZOLPIDEM [Concomitant]
     Active Substance: ZOLPIDEM TARTRATE
     Dosage: UNK
  15. 2,5?DIMETHOXY?4?METHYLAMPHETAMINE. [Concomitant]
     Active Substance: 2,5-DIMETHOXY-4-METHYLAMPHETAMINE
     Dosage: UNK
  16. METHYLPHENIDATE. [Concomitant]
     Active Substance: METHYLPHENIDATE
     Dosage: UNK
  17. KETAMINE [Concomitant]
     Active Substance: KETAMINE
     Dosage: UNK
  18. COCAINE [Concomitant]
     Active Substance: COCAINE
     Dosage: UNK

REACTIONS (4)
  - Drug abuse [Fatal]
  - Drug dependence [Fatal]
  - Death [Fatal]
  - Toxicity to various agents [Fatal]
